FAERS Safety Report 8140876-8 (Version None)
Quarter: 2012Q1

REPORT INFORMATION
  Report Type: 
  Country: None (occurrence: None)
  Receive Date: 20120216
  Receipt Date: 20120206
  Transmission Date: 20120608
  Serious: Yes (Other)
  Sender: FDA-Public Use
  Company Number: US-JNJFOC-20120204322

PATIENT
  Sex: Female
  Weight: 86.18 kg

DRUGS (9)
  1. SIMPONI [Suspect]
     Indication: RHEUMATOID ARTHRITIS
     Route: 058
  2. HYDROCODONE [Concomitant]
     Indication: ARTHRITIS
     Route: 065
  3. ZYRTEC [Concomitant]
     Indication: MULTIPLE ALLERGIES
     Route: 048
  4. REMICADE [Suspect]
     Indication: RHEUMATOID ARTHRITIS
     Dosage: DOSE:700 OR 800MG EVERY 6-8 WEEKS.   STARTED 3-4 YEARS AGO
     Route: 042
  5. OMEPRAZOLE [Concomitant]
     Indication: GASTRIC DISORDER
     Route: 048
  6. ^ARTHRITIS MEDICINE^ [Suspect]
     Indication: ARTHRITIS
     Route: 065
  7. VITAMIN D [Concomitant]
     Indication: VITAMIN D DEFICIENCY
     Dosage: DOSE:50000 UNITS
     Route: 048
  8. REMICADE [Suspect]
     Route: 042
     Dates: start: 20111220
  9. ANTIHYPERTENSION MEDICATION [Suspect]
     Indication: BLOOD PRESSURE
     Route: 065

REACTIONS (8)
  - NAUSEA [None]
  - THYROID DISORDER [None]
  - ARTHRITIS [None]
  - ASTHENIA [None]
  - PAIN IN EXTREMITY [None]
  - BLOOD CHOLESTEROL INCREASED [None]
  - MALAISE [None]
  - BLOOD PRESSURE INCREASED [None]
